FAERS Safety Report 7724541-4 (Version None)
Quarter: 2011Q3

REPORT INFORMATION
  Report Type: 
  Country: None (occurrence: None)
  Receive Date: 20110829
  Receipt Date: 20110816
  Transmission Date: 20111222
  Serious: Yes (Hospitalization)
  Sender: FDA-Public Use
  Company Number: DAV-AE-MTX-11-046

PATIENT
  Age: 63 Year
  Sex: Male

DRUGS (2)
  1. ADALIMUMAB [Concomitant]
  2. METHOTREXATE [Suspect]
     Indication: RHEUMATOID ARTHRITIS
     Dosage: ORAL
     Route: 048
     Dates: start: 20101018

REACTIONS (1)
  - COLITIS ISCHAEMIC [None]
